FAERS Safety Report 6131650-2 (Version None)
Quarter: 2009Q1

REPORT INFORMATION
  Report Type: 
  Country: None (occurrence: None)
  Receive Date: 20090325
  Receipt Date: 20090108
  Transmission Date: 20090719
  Serious: Yes (Life-Threatening, Other)
  Sender: FDA-Public Use
  Company Number: US-BRISTOL-MYERS SQUIBB COMPANY-14463889

PATIENT
  Sex: Male

DRUGS (2)
  1. ERBITUX [Suspect]
     Indication: COLORECTAL CANCER
  2. XELODA [Suspect]
     Indication: COLORECTAL CANCER

REACTIONS (2)
  - CARDIO-RESPIRATORY ARREST [None]
  - HYPOTENSION [None]
